FAERS Safety Report 14998210 (Version 1)
Quarter: 2018Q2

REPORT INFORMATION
  Report Type: Spontaneous
  Country: US (occurrence: US)
  Receive Date: 20180611
  Receipt Date: 20180611
  Transmission Date: 20180711
  Serious: No
  Sender: FDA-Public Use
  Company Number: US-TOLMAR, INC.-TOLG20180313

PATIENT
  Sex: Female

DRUGS (1)
  1. CALCIPOTRIENE. [Suspect]
     Active Substance: CALCIPOTRIENE
     Indication: PSORIASIS
     Dosage: APPLY A THIN LAYER TO PALMS AND FEET AND RUB IN
     Route: 061

REACTIONS (1)
  - Skin exfoliation [Unknown]
